FAERS Safety Report 11278044 (Version 6)
Quarter: 2020Q4

REPORT INFORMATION
  Report Type: Other
  Country: US (occurrence: US)
  Receive Date: 20150717
  Receipt Date: 20201002
  Transmission Date: 20210113
  Serious: Yes (Other)
  Sender: FDA-Public Use
  Company Number: US-ROCHE-1607461

PATIENT
  Sex: Female

DRUGS (4)
  1. LAPATINIB [Suspect]
     Active Substance: LAPATINIB
     Indication: HER2 POSITIVE BREAST CANCER
     Route: 048
  2. TRASTUZUMAB. [Suspect]
     Active Substance: TRASTUZUMAB
     Indication: HER2 POSITIVE BREAST CANCER
     Dosage: LOADING DOSE
     Route: 041
  3. TRASTUZUMAB. [Suspect]
     Active Substance: TRASTUZUMAB
     Dosage: MAINTENANCE DOSE
     Route: 041
  4. LETROZOLE. [Suspect]
     Active Substance: LETROZOLE
     Indication: HER2 POSITIVE BREAST CANCER
     Route: 048

REACTIONS (5)
  - Liver function test increased [Unknown]
  - Diarrhoea [Unknown]
  - Anaemia [Unknown]
  - Nephrolithiasis [Unknown]
  - Mucosal inflammation [Unknown]
